FAERS Safety Report 21224511 (Version 1)
Quarter: 2022Q3

REPORT INFORMATION
  Report Type: Spontaneous
  Country: US (occurrence: US)
  Receive Date: 20220817
  Receipt Date: 20220817
  Transmission Date: 20221026
  Serious: Yes (Other)
  Sender: FDA-Public Use
  Company Number: US-BAUSCH-BL-2022-019894

PATIENT
  Age: 20 Year
  Sex: Male

DRUGS (8)
  1. LORAZEPAM [Interacting]
     Active Substance: LORAZEPAM
     Indication: Catatonia
     Route: 065
  2. RISPERIDONE [Interacting]
     Active Substance: RISPERIDONE
     Indication: Impulsive behaviour
     Route: 065
  3. RISPERIDONE [Interacting]
     Active Substance: RISPERIDONE
     Indication: Agitation
  4. CLONAZEPAM [Interacting]
     Active Substance: CLONAZEPAM
     Indication: Myoclonus
     Route: 065
  5. CLONAZEPAM [Interacting]
     Active Substance: CLONAZEPAM
     Indication: Seizure
  6. CLOBAZAM [Interacting]
     Active Substance: CLOBAZAM
     Indication: Myoclonus
     Route: 065
  7. CLOBAZAM [Interacting]
     Active Substance: CLOBAZAM
     Indication: Seizure
  8. LEVETIRACETAM [Interacting]
     Active Substance: LEVETIRACETAM
     Indication: Lafora^s myoclonic epilepsy
     Route: 065

REACTIONS (7)
  - Drug interaction [Unknown]
  - Psychotic disorder [Recovering/Resolving]
  - Confusional state [Recovering/Resolving]
  - Delirium [Recovering/Resolving]
  - Condition aggravated [Recovering/Resolving]
  - Hallucination, visual [Unknown]
  - Multiple drug therapy [Unknown]
